FAERS Safety Report 8926741 (Version 3)
Quarter: 2013Q4

REPORT INFORMATION
  Report Type: Spontaneous
  Country: US (occurrence: US)
  Receive Date: 20121127
  Receipt Date: 20131111
  Transmission Date: 20140711
  Serious: Yes (Other)
  Sender: FDA-Public Use
  Company Number: US-PFIZER INC-2012292836

PATIENT
  Age: 61 Year
  Sex: Female
  Weight: 58.1 kg

DRUGS (2)
  1. PREMARIN [Suspect]
     Indication: HORMONE REPLACEMENT THERAPY
     Dosage: 1.25 MG, 1X/DAY
     Route: 048
  2. PROTONIX [Suspect]
     Indication: ABDOMINAL DISCOMFORT
     Dosage: 40 MG, 1X/DAY

REACTIONS (3)
  - Herpes zoster [Recovering/Resolving]
  - Peripheral nerve injury [Unknown]
  - Malaise [Unknown]
